FAERS Safety Report 5731949-5 (Version None)
Quarter: 2008Q2

REPORT INFORMATION
  Report Type: 
  Country: None (occurrence: None)
  Receive Date: 20080508
  Receipt Date: 20080430
  Transmission Date: 20081010
  Serious: Yes (Life-Threatening, Hospitalization, Other)
  Sender: FDA-Public Use
  Company Number: US-ASTRAZENECA-2008CG00671

PATIENT
  Age: 16970 Day
  Sex: Male

DRUGS (8)
  1. PROPOFOL [Suspect]
     Dosage: 3 TO 4 MG/KG/HOUR
     Route: 042
     Dates: start: 20080407, end: 20080413
  2. ERITORAN CODE NOT BROKEN [Suspect]
     Indication: SEPTIC SHOCK
     Route: 042
     Dates: start: 20080407, end: 20080401
  3. ERITORAN CODE NOT BROKEN [Suspect]
     Route: 042
     Dates: start: 20080401, end: 20080401
  4. ERITORAN CODE NOT BROKEN [Suspect]
     Route: 042
     Dates: start: 20080401, end: 20080412
  5. OMEPRAZOLE [Concomitant]
     Route: 042
     Dates: start: 20080407
  6. TAZOCILLINE [Concomitant]
     Route: 042
     Dates: start: 20080407
  7. FUROSEMIDE [Concomitant]
     Route: 042
  8. REMIFENTANIL [Concomitant]
     Dosage: 5 UG/KG/MIN
     Route: 042
     Dates: start: 20080407, end: 20080413

REACTIONS (3)
  - ARRHYTHMIA SUPRAVENTRICULAR [None]
  - CARDIOGENIC SHOCK [None]
  - RHABDOMYOLYSIS [None]
